FAERS Safety Report 7565401-1 (Version None)
Quarter: 2011Q2

REPORT INFORMATION
  Report Type: 
  Country: None (occurrence: None)
  Receive Date: 20110623
  Receipt Date: 20110613
  Transmission Date: 20111010
  Serious: No
  Sender: FDA-Public Use
  Company Number: US-BIOGENIDEC-2011BI021858

PATIENT
  Sex: Female

DRUGS (4)
  1. MOTRIN [Concomitant]
  2. MOTRIN [Concomitant]
     Indication: OOPHORECTOMY
  3. TYSABRI [Suspect]
     Indication: MULTIPLE SCLEROSIS
     Route: 042
     Dates: start: 20090828
  4. MOTRIN [Concomitant]
     Indication: DYSMENORRHOEA

REACTIONS (4)
  - DERMATITIS CONTACT [None]
  - OVARIAN CYST [None]
  - DYSMENORRHOEA [None]
  - ENDOMETRIOSIS [None]
